FAERS Safety Report 9079168 (Version 1)
Quarter: 2013Q1

REPORT INFORMATION
  Report Type: Spontaneous
  Country: US (occurrence: US)
  Receive Date: 20130130
  Receipt Date: 20130130
  Transmission Date: 20140127
  Serious: Yes (Other)
  Sender: FDA-Public Use
  Company Number: US-ABBOTT-12P-163-0957141-00

PATIENT
  Age: 47 Year
  Sex: Female
  Weight: 79.18 kg

DRUGS (12)
  1. HUMIRA 40 MG/0.8 ML PEN [Suspect]
     Indication: PSORIASIS
     Route: 058
     Dates: start: 20111003
  2. HUMIRA 40 MG/0.8 ML PEN [Suspect]
     Route: 058
     Dates: start: 201206, end: 201206
  3. HUMIRA 40 MG/0.8 ML PEN [Suspect]
     Dosage: 1 WEEK AFTER 80 MG DOSE
     Route: 058
     Dates: start: 201206
  4. STELARA [Suspect]
     Indication: PSORIASIS
     Dates: start: 201111, end: 201112
  5. PREDNISONE [Suspect]
     Indication: PRODUCT USED FOR UNKNOWN INDICATION
  6. ENTECAVIR [Concomitant]
     Indication: HEPATITIS B
     Dates: start: 201112
  7. TRAMADOL [Concomitant]
     Indication: PRODUCT USED FOR UNKNOWN INDICATION
  8. ZOFRAN [Concomitant]
     Indication: NAUSEA
  9. ZOFRAN [Concomitant]
     Indication: VOMITING
  10. HYDROXYZINE HCL [Concomitant]
     Indication: PRODUCT USED FOR UNKNOWN INDICATION
  11. BARACLUDE [Concomitant]
     Indication: PRODUCT USED FOR UNKNOWN INDICATION
  12. XIFAXAN [Concomitant]
     Indication: PRODUCT USED FOR UNKNOWN INDICATION

REACTIONS (9)
  - Hepatitis B [Not Recovered/Not Resolved]
  - Arthralgia [Unknown]
  - Headache [Unknown]
  - Influenza like illness [Recovered/Resolved]
  - Dysphagia [Unknown]
  - Psoriasis [Unknown]
  - Nausea [Unknown]
  - Encephalopathy [Unknown]
  - Serum sickness-like reaction [Unknown]
